FAERS Safety Report 8554720-8 (Version None)
Quarter: 2012Q3

REPORT INFORMATION
  Report Type: 
  Country: None (occurrence: None)
  Receive Date: 20120731
  Receipt Date: 20120723
  Transmission Date: 20120928
  Serious: Yes (Hospitalization)
  Sender: FDA-Public Use
  Company Number: US-US-EMD SERONO, INC.-7149145

PATIENT
  Sex: Female

DRUGS (3)
  1. REBIF [Suspect]
     Route: 058
     Dates: start: 20120718, end: 20120718
  2. AMITRIPTLINE HYDROCHLORIDE TAB [Concomitant]
     Indication: HEADACHE
  3. REBIF [Suspect]
     Indication: MULTIPLE SCLEROSIS
     Route: 058
     Dates: start: 20120702

REACTIONS (3)
  - INFLUENZA LIKE ILLNESS [None]
  - HYPERTENSION [None]
  - HEADACHE [None]
